FAERS Safety Report 20205764 (Version 2)
Quarter: 2022Q1

REPORT INFORMATION
  Report Type: Spontaneous
  Country: US (occurrence: None)
  Receive Date: 20211220
  Receipt Date: 20220126
  Transmission Date: 20220424
  Serious: Yes (Other)
  Sender: FDA-Public Use
  Company Number: US-Hikma Pharmaceuticals USA Inc.-US-H14001-21-05010

PATIENT
  Age: 71 Year
  Sex: Female

DRUGS (4)
  1. FLUTICASONE [Suspect]
     Active Substance: FLUTICASONE
     Indication: Hypersensitivity
     Dosage: ONE SPRAY EACH NOSTRIL
     Route: 045
     Dates: start: 202107
  2. FLUTICASONE [Suspect]
     Active Substance: FLUTICASONE
     Indication: Sinus operation
  3. FLUTICASONE [Suspect]
     Active Substance: FLUTICASONE
     Indication: Seasonal allergy
  4. FLUTICASONE [Suspect]
     Active Substance: FLUTICASONE
     Indication: Rhinorrhoea

REACTIONS (7)
  - Drug hypersensitivity [Recovered/Resolved]
  - Urticaria [Recovered/Resolved]
  - Swelling face [Recovered/Resolved]
  - Off label use [Recovered/Resolved]
  - Lip swelling [Recovered/Resolved]
  - Aphonia [Recovered/Resolved]
  - Laryngeal disorder [Recovered/Resolved]
